FAERS Safety Report 11790489 (Version 2)
Quarter: 2016Q3

REPORT INFORMATION
  Report Type: Not Available
  Country: FR (occurrence: FR)
  Receive Date: 20151201
  Receipt Date: 20160909
  Transmission Date: 20161109
  Serious: Yes (Other)
  Sender: FDA-Public Use
  Company Number: FR-CONCORDIA PHARMACEUTICALS INC.-CO-PL-FR-2015-390

PATIENT
  Age: 69 Year
  Sex: Female

DRUGS (1)
  1. PLAQUENIL [Suspect]
     Active Substance: HYDROXYCHLOROQUINE SULFATE
     Indication: PRODUCT USED FOR UNKNOWN INDICATION
     Route: 048
     Dates: start: 1995

REACTIONS (4)
  - Blood immunoglobulin A decreased [Not Recovered/Not Resolved]
  - Visual field defect [Not Recovered/Not Resolved]
  - Glare [Not Recovered/Not Resolved]
  - Blood immunoglobulin A increased [Unknown]

NARRATIVE: CASE EVENT DATE: 20151116
